FAERS Safety Report 21996403 (Version 3)
Quarter: 2023Q2

REPORT INFORMATION
  Report Type: Spontaneous
  Country: US (occurrence: US)
  Receive Date: 20230215
  Receipt Date: 20230509
  Transmission Date: 20230721
  Serious: Yes (Other)
  Sender: FDA-Public Use
  Company Number: US-PFIZER INC-202300019044

PATIENT
  Age: 64 Year
  Sex: Female
  Weight: 56.3 kg

DRUGS (7)
  1. IBRANCE [Suspect]
     Active Substance: PALBOCICLIB
     Dosage: 125 MG, CYCLIC (DAILY FOR 21 DAYS, THEN 7 DAYS OFF)
     Route: 048
     Dates: start: 20230103
  2. IBRANCE [Suspect]
     Active Substance: PALBOCICLIB
     Dosage: 100 MG, CYCLIC (TAKE 1 CAPSULE ONCE DAILY ON DAYS 1 THROUGH 21 OF A 28 DAY CYCLE)
     Route: 048
     Dates: start: 2023
  3. CALCIUM [Concomitant]
     Active Substance: CALCIUM
     Dosage: UNK
  4. FEMARA [Concomitant]
     Active Substance: LETROZOLE
     Dosage: UNK
  5. SYNTHROID [Concomitant]
     Active Substance: LEVOTHYROXINE SODIUM
     Dosage: UNK
  6. VITAMIN D3 [Concomitant]
     Active Substance: CHOLECALCIFEROL
     Dosage: UNK
  7. LETROZOLE [Concomitant]
     Active Substance: LETROZOLE
     Dosage: UNK

REACTIONS (5)
  - Fatigue [Recovered/Resolved]
  - Dyspnoea exertional [Recovered/Resolved]
  - Headache [Recovered/Resolved]
  - Vomiting [Recovering/Resolving]
  - White blood cell count decreased [Unknown]

NARRATIVE: CASE EVENT DATE: 20230101
